FAERS Safety Report 8033449 (Version 2)
Quarter: 2013Q1

REPORT INFORMATION
  Report Type: Report from Study
  Country: US (occurrence: US)
  Receive Date: 20110713
  Receipt Date: 20130306
  Transmission Date: 20140127
  Serious: Yes (Hospitalization)
  Sender: FDA-Public Use
  Company Number: US-UCBSA-036776

PATIENT
  Age: 43 Year
  Sex: Female
  Weight: 53.6 kg

DRUGS (7)
  1. LACOSAMIDE [Suspect]
     Indication: PARTIAL SEIZURES
     Route: 048
     Dates: start: 20110506
  2. FOLIC ACID [Concomitant]
     Indication: NEURAL TUBE DEFECT
     Route: 048
  3. LEVETIRACETAM [Concomitant]
     Indication: EPILEPSY
     Route: 048
  4. LEUPROLIDE [Concomitant]
     Indication: EPILEPSY
     Dosage: 11.25 MG. FREQ.:Q3M
  5. LAMOTRIGINE [Concomitant]
     Indication: EPILEPSY
     Route: 048
  6. PROGESTERON [Concomitant]
     Indication: EPILEPSY
     Dosage: 200 MG Q AM AND 400 MG Q PM
     Route: 048
  7. DIAZEPAM [Concomitant]
     Indication: ANXIETY
     Route: 048

REACTIONS (4)
  - Headache [Recovered/Resolved]
  - Diplopia [Recovered/Resolved]
  - Ataxia [Recovered/Resolved]
  - Dysarthria [Recovered/Resolved]
